FAERS Safety Report 9345944 (Version 1)
Quarter: 2013Q2

REPORT INFORMATION
  Report Type: Spontaneous
  Country: US (occurrence: US)
  Receive Date: 20130613
  Receipt Date: 20130613
  Transmission Date: 20140414
  Serious: Yes (Other)
  Sender: FDA-Public Use
  Company Number: US-ROXANE LABORATORIES, INC.-2013-RO-00938RO

PATIENT
  Age: 57 Year
  Sex: Female

DRUGS (2)
  1. METHADONE [Suspect]
     Indication: SPONDYLITIS
  2. VICODIN [Suspect]
     Indication: SPONDYLITIS

REACTIONS (3)
  - Dry mouth [Unknown]
  - Oral bacterial infection [Unknown]
  - Tooth extraction [Unknown]
